APPROVED DRUG PRODUCT: ACETIC ACID
Active Ingredient: ACETIC ACID, GLACIAL
Strength: 2%
Dosage Form/Route: SOLUTION/DROPS;OTIC
Application: A040607 | Product #001 | TE Code: AT
Applicant: SCIEGEN PHARMACEUTICALS INC
Approved: Feb 24, 2005 | RLD: No | RS: Yes | Type: RX